FAERS Safety Report 15883234 (Version 1)
Quarter: 2019Q1

REPORT INFORMATION
  Report Type: Spontaneous
  Country: US (occurrence: US)
  Receive Date: 20190128
  Receipt Date: 20190128
  Transmission Date: 20190417
  Serious: Yes (Hospitalization)
  Sender: FDA-Public Use
  Company Number: None

PATIENT
  Age: 57 Year
  Sex: Female
  Weight: 93 kg

DRUGS (2)
  1. STEGLATRO [Suspect]
     Active Substance: ERTUGLIFLOZIN PIDOLATE
     Indication: TYPE 2 DIABETES MELLITUS
     Route: 048
     Dates: start: 20181203, end: 20181231
  2. AMLODIPINE 10 MG [Concomitant]
     Active Substance: AMLODIPINE BESYLATE
     Dates: start: 20080101, end: 20190128

REACTIONS (5)
  - Urine abnormality [None]
  - Dysuria [None]
  - Urine odour abnormal [None]
  - Micturition urgency [None]
  - Blood urine present [None]

NARRATIVE: CASE EVENT DATE: 20181210
